FAERS Safety Report 7669813-7 (Version None)
Quarter: 2011Q3

REPORT INFORMATION
  Report Type: 
  Country: None (occurrence: None)
  Receive Date: 20110808
  Receipt Date: 20110803
  Transmission Date: 20111222
  Serious: Yes (Hospitalization)
  Sender: FDA-Public Use
  Company Number: JP-ABBOTT-11P-087-0843764-00

PATIENT
  Sex: Male
  Weight: 53.8 kg

DRUGS (8)
  1. HUMIRA [Suspect]
     Dates: start: 20110121, end: 20110121
  2. MONOAMMONIUM GLYCYRRHIZINATE/GLYCINE/DL-METHIONINE [Concomitant]
     Indication: PROPHYLAXIS
     Route: 048
  3. HUMIRA [Suspect]
  4. HUMIRA [Suspect]
     Indication: CROHN'S DISEASE
     Route: 058
     Dates: start: 20110107, end: 20110107
  5. RANITIDINE HYDROCHLORIDE [Concomitant]
     Indication: PROPHYLAXIS
     Route: 048
  6. MESALAMINE [Concomitant]
     Indication: CROHN'S DISEASE
     Dosage: 3000 MG DAILY
     Route: 048
  7. ECABET SODIUM HYDRATE [Concomitant]
     Indication: PROPHYLAXIS
     Route: 048
  8. URSODIOL [Concomitant]
     Indication: PROPHYLAXIS
     Route: 048

REACTIONS (1)
  - BILE DUCT STONE [None]
